FAERS Safety Report 21046950 (Version 3)
Quarter: 2022Q3

REPORT INFORMATION
  Report Type: Spontaneous
  Country: CA (occurrence: CA)
  Receive Date: 20220706
  Receipt Date: 20220727
  Transmission Date: 20221027
  Serious: Yes (Other)
  Sender: FDA-Public Use
  Company Number: CA-PFIZER INC-202200878315

PATIENT
  Age: 42 Year
  Sex: Female

DRUGS (5)
  1. XELJANZ XR [Suspect]
     Active Substance: TOFACITINIB CITRATE
     Indication: Psoriatic arthropathy
     Dosage: 11 MG, 1X/DAY (DIE)
     Route: 048
     Dates: start: 20220503, end: 2022
  2. CORTISONE [Concomitant]
     Active Substance: CORTISONE
     Dosage: UNK, AS NEEDED
     Route: 030
  3. CORTISONE [Concomitant]
     Active Substance: CORTISONE
     Dosage: UNK, AS NEEDED
     Route: 014
  4. CORTEF [Concomitant]
     Active Substance: HYDROCORTISONE
     Dosage: UNK, DAILY, 40 TO 60 MG DIE
     Route: 048
  5. LEFLUNOMIDE [Concomitant]
     Active Substance: LEFLUNOMIDE
     Dosage: UNK

REACTIONS (5)
  - Abscess limb [Unknown]
  - Disease recurrence [Unknown]
  - Respiratory tract infection [Not Recovered/Not Resolved]
  - Thrombophlebitis [Unknown]
  - Illness [Not Recovered/Not Resolved]

NARRATIVE: CASE EVENT DATE: 20220101
